FAERS Safety Report 11368048 (Version 1)
Quarter: 2015Q3

REPORT INFORMATION
  Report Type: Spontaneous
  Country: US (occurrence: None)
  Receive Date: 20150810
  Receipt Date: 20150810
  Transmission Date: 20151125
  Serious: Yes (Other)
  Sender: FDA-Public Use
  Company Number: POI0573201500050

PATIENT
  Sex: Female

DRUGS (1)
  1. NIFEDIPINE EXTENDED-RELEASE TABLETS, USP [Suspect]
     Active Substance: NIFEDIPINE
     Indication: TOCOLYSIS
     Route: 048
     Dates: start: 2014, end: 2014

REACTIONS (1)
  - Oligohydramnios [None]

NARRATIVE: CASE EVENT DATE: 201405
